FAERS Safety Report 6288951-7 (Version None)
Quarter: 2009Q3

REPORT INFORMATION
  Report Type: 
  Country: None (occurrence: None)
  Receive Date: 20090729
  Receipt Date: 20090717
  Transmission Date: 20100115
  Serious: Yes (Hospitalization)
  Sender: FDA-Public Use
  Company Number: JP-SANOFI-SYNTHELABO-F01200900697

PATIENT
  Sex: Male

DRUGS (5)
  1. FOLINIC ACID [Suspect]
     Indication: COLORECTAL CANCER
     Route: 042
     Dates: start: 20090626, end: 20090626
  2. FLUOROURACIL [Suspect]
     Indication: COLORECTAL CANCER
     Route: 042
     Dates: start: 20090626, end: 20090626
  3. FLUOROURACIL [Suspect]
     Route: 042
     Dates: start: 20080612, end: 20090623
  4. SUNITINIB [Suspect]
     Indication: COLORECTAL CANCER
     Dosage: 4 WEEKS ON , 2 WEEKS OFF
     Route: 048
     Dates: start: 20080612
  5. OXALIPLATIN [Suspect]
     Indication: COLORECTAL CANCER
     Route: 041
     Dates: start: 20090626, end: 20090626

REACTIONS (1)
  - CEREBRAL INFARCTION [None]
